FAERS Safety Report 12772210 (Version 1)
Quarter: 2016Q3

REPORT INFORMATION
  Report Type: Spontaneous
  Country: US (occurrence: US)
  Receive Date: 20160922
  Receipt Date: 20160922
  Transmission Date: 20161109
  Serious: Yes (Hospitalization)
  Sender: FDA-Public Use
  Company Number: US-LPDUSPRD-20160821

PATIENT
  Age: 75 Year
  Sex: Male

DRUGS (5)
  1. TOPIRAMATE. [Concomitant]
     Active Substance: TOPIRAMATE
     Dosage: 100 MG TWICE A DAY
     Route: 065
  2. SERTRALINE [Concomitant]
     Active Substance: SERTRALINE HYDROCHLORIDE
     Dosage: 50 MG ONCE IN MORNING
     Route: 065
  3. OLANZAPINE FOR INJECTION (0517-0955-01) [Suspect]
     Active Substance: OLANZAPINE
     Dosage: 15 MG NIGHTLY AT BEDTIME
     Route: 065
  4. AMITRIPTYLINE [Concomitant]
     Active Substance: AMITRIPTYLINE
     Dosage: 20 MG AM/30 MG PM BEDTIME
     Route: 065
  5. CHLORADIAZEPOXIDE [Concomitant]
     Dosage: 50 MG AM/75 MG PM BEDTIME
     Route: 065

REACTIONS (5)
  - Aggression [Recovered/Resolved]
  - Abnormal behaviour [Recovered/Resolved]
  - Delusion of replacement [Recovered/Resolved]
  - Pneumonia [Unknown]
  - Agitation [Recovered/Resolved]
